FAERS Safety Report 5530948-6 (Version None)
Quarter: 2007Q4

REPORT INFORMATION
  Report Type: 
  Country: None (occurrence: None)
  Receive Date: 20071130
  Receipt Date: 20071120
  Transmission Date: 20080405
  Serious: Yes (Other)
  Sender: FDA-Public Use
  Company Number: CA-PFIZER INC-2007080943

PATIENT
  Age: 43 Year
  Sex: Female
  Weight: 72.6 kg

DRUGS (4)
  1. CHAMPIX [Suspect]
     Route: 048
     Dates: start: 20070709, end: 20070709
  2. ONE-A-DAY [Concomitant]
  3. SERTRALINE [Concomitant]
  4. TRAZODONE HCL [Concomitant]

REACTIONS (5)
  - FLUSHING [None]
  - HYPERSENSITIVITY [None]
  - RASH MACULAR [None]
  - THROAT TIGHTNESS [None]
  - WHEEZING [None]
